FAERS Safety Report 19036659 (Version 2)
Quarter: 2021Q1

REPORT INFORMATION
  Report Type: Spontaneous
  Country: US (occurrence: US)
  Receive Date: 20210322
  Receipt Date: 20210323
  Transmission Date: 20210420
  Serious: Yes (Death, Hospitalization)
  Sender: FDA-Public Use
  Company Number: US-JNJFOC-20210326592

PATIENT

DRUGS (1)
  1. DIPHENHYDRAMINE HYDROCHLORIDE. [Suspect]
     Active Substance: DIPHENHYDRAMINE HYDROCHLORIDE
     Indication: PRODUCT USED FOR UNKNOWN INDICATION
     Route: 065

REACTIONS (24)
  - Hallucination [Fatal]
  - Tachycardia [Fatal]
  - Depressed level of consciousness [Fatal]
  - Hyperthermia [Fatal]
  - Muscle rigidity [Fatal]
  - Anion gap increased [Fatal]
  - Rhabdomyolysis [Fatal]
  - Dystonia [Fatal]
  - Intentional self-injury [Fatal]
  - Toxicity to various agents [Fatal]
  - Hyperreflexia [Fatal]
  - Electrocardiogram QRS complex prolonged [Fatal]
  - Agitation [Fatal]
  - Acute kidney injury [Fatal]
  - Tremor [Fatal]
  - Acidosis [Fatal]
  - Delirium [Fatal]
  - Myoclonus [Fatal]
  - Coma [Fatal]
  - Substance-induced psychotic disorder [Fatal]
  - Seizure [Fatal]
  - Ventricular arrhythmia [Fatal]
  - Clonus [Fatal]
  - Overdose [Fatal]
